FAERS Safety Report 16399038 (Version 1)
Quarter: 2019Q2

REPORT INFORMATION
  Report Type: Spontaneous
  Country: US (occurrence: US)
  Receive Date: 20190606
  Receipt Date: 20190606
  Transmission Date: 20190711
  Serious: No
  Sender: FDA-Public Use
  Company Number: US-GLAXOSMITHKLINE-US2019AMR101551

PATIENT

DRUGS (2)
  1. WELLBUTRIN [Suspect]
     Active Substance: BUPROPION HYDROCHLORIDE
     Indication: PRODUCT USED FOR UNKNOWN INDICATION
  2. ROPINIROLE. [Suspect]
     Active Substance: ROPINIROLE
     Indication: PRODUCT USED FOR UNKNOWN INDICATION
     Dosage: UNK

REACTIONS (8)
  - Drug hypersensitivity [Unknown]
  - Paranasal sinus discomfort [Unknown]
  - Obstructive airways disorder [Unknown]
  - Mental status changes [Unknown]
  - Lacrimation increased [Unknown]
  - Dizziness [Unknown]
  - Mood altered [Unknown]
  - Somnolence [Unknown]
